FAERS Safety Report 5598347-9 (Version None)
Quarter: 2008Q1

REPORT INFORMATION
  Report Type: 
  Country: None (occurrence: None)
  Receive Date: 20080116
  Receipt Date: 20080103
  Transmission Date: 20080703
  Serious: Yes (Hospitalization)
  Sender: FDA-Public Use
  Company Number: 2008BI000363

PATIENT
  Age: 40 Year
  Sex: Female
  Weight: 52.1637 kg

DRUGS (2)
  1. AVONEX [Suspect]
     Indication: MULTIPLE SCLEROSIS
     Dosage: 30 UG; QW; IM
     Route: 030
     Dates: start: 20000101, end: 20071001
  2. CELLCEPT [Concomitant]

REACTIONS (2)
  - HIP ARTHROPLASTY [None]
  - OPTIC NEURITIS [None]
